FAERS Safety Report 4603213-9 (Version None)
Quarter: 2005Q2

REPORT INFORMATION
  Report Type: 
  Country: None (occurrence: None)
  Receive Date: 20050223
  Receipt Date: 20040830
  Transmission Date: 20051028
  Serious: Yes (Other)
  Sender: FDA-Public Use
  Company Number: PHEH2004US07758

PATIENT
  Sex: Male

DRUGS (3)
  1. DIOVAN [Suspect]
     Dosage: 160 MG, QD, ORAL; 160 MG, BID, ORAL
     Route: 048
     Dates: start: 20040718
  2. NORVASC [Suspect]
  3. MONOPRIL [Suspect]

REACTIONS (2)
  - BLOOD PRESSURE INCREASED [None]
  - HYPERHIDROSIS [None]
